FAERS Safety Report 6210710-1 (Version None)
Quarter: 2009Q2

REPORT INFORMATION
  Report Type: 
  Country: None (occurrence: None)
  Receive Date: 20090601
  Receipt Date: 20090528
  Transmission Date: 20091009
  Serious: No
  Sender: FDA-Public Use
  Company Number: US-B.I. PHARMACEUTICALS,INC./RIDGEFIELD-2009-BP-05836BP

PATIENT
  Age: 57 Year
  Sex: Female

DRUGS (1)
  1. SPIRIVA [Suspect]
     Dates: start: 20090201, end: 20090301

REACTIONS (3)
  - CANDIDIASIS [None]
  - DRY MOUTH [None]
  - ORAL PAIN [None]
